FAERS Safety Report 9094083 (Version 1)
Quarter: 2013Q1

REPORT INFORMATION
  Report Type: Spontaneous
  Country: US (occurrence: None)
  Receive Date: 20130122
  Receipt Date: 20130122
  Transmission Date: 20140127
  Serious: Yes (Death, Other)
  Sender: FDA-Public Use
  Company Number: TPA2013A00854

PATIENT
  Sex: Male

DRUGS (1)
  1. ACTOS [Suspect]
     Route: 048

REACTIONS (1)
  - Neoplasm malignant [None]
